FAERS Safety Report 13549558 (Version 1)
Quarter: 2017Q2

REPORT INFORMATION
  Report Type: Spontaneous
  Country: FR (occurrence: FR)
  Receive Date: 20170516
  Receipt Date: 20170516
  Transmission Date: 20170830
  Serious: Yes (Hospitalization)
  Sender: FDA-Public Use
  Company Number: FR-ROCHE-1931672

PATIENT
  Age: 29 Year
  Sex: Female

DRUGS (15)
  1. NIVOLUMAB [Concomitant]
     Active Substance: NIVOLUMAB
  2. CORTANCYL [Concomitant]
     Active Substance: PREDNISONE
  3. OXYCONTIN [Concomitant]
     Active Substance: OXYCODONE HYDROCHLORIDE
  4. ZELBORAF [Suspect]
     Active Substance: VEMURAFENIB
     Indication: MALIGNANT MELANOMA
     Route: 048
     Dates: start: 20161229
  5. COTELLIC [Suspect]
     Active Substance: COBIMETINIB
     Indication: MALIGNANT MELANOMA
     Route: 048
     Dates: start: 20161229
  6. DOLIPRANE [Concomitant]
     Active Substance: ACETAMINOPHEN
  7. RELISTOR [Concomitant]
     Active Substance: METHYLNALTREXONE BROMIDE
  8. XANAX [Concomitant]
     Active Substance: ALPRAZOLAM
  9. INEXIUM [Concomitant]
     Active Substance: ESOMEPRAZOLE
  10. NEURONTIN [Concomitant]
     Active Substance: GABAPENTIN
  11. IPILIMUMAB [Concomitant]
     Active Substance: IPILIMUMAB
  12. PRIMPERAN [Concomitant]
     Active Substance: METOCLOPRAMIDE HYDROCHLORIDE
  13. OXYNORMORO [Concomitant]
     Active Substance: OXYCODONE
  14. SPASFON (FRANCE) [Concomitant]
     Active Substance: PHLOROGLUCINOL\1,3,5-TRIMETHOXYBENZENE
  15. LAROXYL [Concomitant]
     Active Substance: AMITRIPTYLINE

REACTIONS (6)
  - White blood cell count increased [Recovered/Resolved]
  - Hepatocellular injury [Recovered/Resolved]
  - Rash [Recovered/Resolved]
  - Cholestasis [Recovered/Resolved]
  - Pyrexia [Recovered/Resolved]
  - C-reactive protein increased [Recovered/Resolved]

NARRATIVE: CASE EVENT DATE: 201701
